FAERS Safety Report 7708192-3 (Version None)
Quarter: 2011Q3

REPORT INFORMATION
  Report Type: 
  Country: None (occurrence: None)
  Receive Date: 20110825
  Receipt Date: 20110815
  Transmission Date: 20111222
  Serious: No
  Sender: FDA-Public Use
  Company Number: US-BIOGENIDEC-2011BI031196

PATIENT
  Age: 37 Year
  Sex: Male

DRUGS (2)
  1. TYSABRI [Suspect]
     Route: 042
     Dates: start: 20071206, end: 20080818
  2. TYSABRI [Suspect]
     Indication: MULTIPLE SCLEROSIS
     Route: 042
     Dates: start: 20100301

REACTIONS (6)
  - VISION BLURRED [None]
  - DRUG INEFFECTIVE [None]
  - SOMNOLENCE [None]
  - DIPLOPIA [None]
  - ASTHENIA [None]
  - MUSCLE SPASMS [None]
